FAERS Safety Report 7646471-9 (Version None)
Quarter: 2011Q3

REPORT INFORMATION
  Report Type: 
  Country: None (occurrence: None)
  Receive Date: 20110801
  Receipt Date: 20110722
  Transmission Date: 20111222
  Serious: Yes (Other)
  Sender: FDA-Public Use
  Company Number: US-BAYER-201040940NA

PATIENT
  Sex: Female
  Weight: 47.619 kg

DRUGS (7)
  1. TYLENOL-500 [Concomitant]
     Indication: HEADACHE
  2. ZOLOFT [Concomitant]
     Indication: DEPRESSION
     Dosage: 50 MG, QD
  3. PRILOSEC [Concomitant]
     Indication: DYSPEPSIA
  4. YAZ [Suspect]
     Indication: ACNE
  5. YAZ [Suspect]
     Indication: CONTRACEPTION
     Dosage: UNK
     Route: 048
     Dates: start: 20071001, end: 20090501
  6. YAZ [Suspect]
     Indication: PREMENSTRUAL SYNDROME
  7. BENADRYL [Concomitant]
     Indication: HYPERSENSITIVITY

REACTIONS (4)
  - CHOLECYSTITIS ACUTE [None]
  - CHOLECYSTITIS CHRONIC [None]
  - GALLBLADDER DISORDER [None]
  - ABDOMINAL PAIN UPPER [None]
